FAERS Safety Report 11224294 (Version 1)
Quarter: 2015Q2

REPORT INFORMATION
  Report Type: Spontaneous
  Country: CA (occurrence: CA)
  Receive Date: 20150629
  Receipt Date: 20150629
  Transmission Date: 20150821
  Serious: Yes (Death)
  Sender: FDA-Public Use
  Company Number: CA-JNJFOC-20150619305

PATIENT

DRUGS (1)
  1. ACETAMINOPHEN EXTRA STRENGTH [Suspect]
     Active Substance: ACETAMINOPHEN
     Indication: PRODUCT USED FOR UNKNOWN INDICATION
     Dosage: 10 EXTRA-STRENGTH (500MG) ACETAMINOPHEN TABLETS MOST DAYS OF THE WEEK.
     Route: 065

REACTIONS (1)
  - Overdose [Fatal]
